FAERS Safety Report 6674147-3 (Version None)
Quarter: 2010Q2

REPORT INFORMATION
  Report Type: 
  Country: None (occurrence: None)
  Receive Date: 20100409
  Receipt Date: 20100401
  Transmission Date: 20101027
  Serious: Yes (Other)
  Sender: FDA-Public Use
  Company Number: NA-BRISTOL-MYERS SQUIBB COMPANY-15052731

PATIENT

DRUGS (1)
  1. ERBITUX [Suspect]
     Dosage: 2 MG/ML

REACTIONS (2)
  - FISTULA [None]
  - HAEMORRHAGE [None]
